FAERS Safety Report 7968725-9 (Version None)
Quarter: 2011Q4

REPORT INFORMATION
  Report Type: 
  Country: None (occurrence: None)
  Receive Date: 20111209
  Receipt Date: 20111202
  Transmission Date: 20120403
  Serious: Yes (Other)
  Sender: FDA-Public Use
  Company Number: US-ABBOTT-11P-163-0870523-00

PATIENT
  Sex: Male
  Weight: 70.37 kg

DRUGS (4)
  1. HUMIRA [Suspect]
     Indication: CROHN'S DISEASE
     Dates: start: 20100901, end: 20110201
  2. IMURAN [Concomitant]
     Indication: CROHN'S DISEASE
  3. XANAX [Concomitant]
     Indication: ANXIETY
  4. ENDOCORT [Concomitant]
     Indication: CROHN'S DISEASE

REACTIONS (3)
  - COLITIS [None]
  - COLONIC STENOSIS [None]
  - ANASTOMOTIC STENOSIS [None]
